FAERS Safety Report 6418757-7 (Version None)
Quarter: 2009Q4

REPORT INFORMATION
  Report Type: 
  Country: None (occurrence: None)
  Receive Date: 20091028
  Receipt Date: 20091014
  Transmission Date: 20100525
  Serious: Yes (Death)
  Sender: FDA-Public Use
  Company Number: US-MYLANLABS-2009S1017886

PATIENT
  Age: 4 Year
  Sex: Male

DRUGS (1)
  1. FENTANYL-100 [Suspect]
     Indication: ACCIDENTAL EXPOSURE
     Dosage: FENTANYL TRANSDERMAL PATCH [DOSAGE NOT STATED]
     Route: 062

REACTIONS (1)
  - ACCIDENTAL EXPOSURE [None]
